FAERS Safety Report 16981883 (Version 1)
Quarter: 2019Q4

REPORT INFORMATION
  Report Type: Report from Study
  Country: CA (occurrence: CA)
  Receive Date: 20191101
  Receipt Date: 20191101
  Transmission Date: 20200122
  Serious: Yes (Death, Hospitalization)
  Sender: FDA-Public Use
  Company Number: CA-ORION CORPORATION ORION PHARMA-TREX2019-4902

PATIENT
  Age: 75 Year
  Sex: Female

DRUGS (9)
  1. COSENTYX [Suspect]
     Active Substance: SECUKINUMAB
     Route: 058
  2. METHOTREXATE (TRADE NAME UNKNOWN) [Suspect]
     Active Substance: METHOTREXATE
     Indication: PSORIASIS
     Route: 065
  3. COSENTYX [Suspect]
     Active Substance: SECUKINUMAB
     Indication: PSORIASIS
     Route: 058
  4. CICLOSPORIN [Suspect]
     Active Substance: CYCLOSPORINE
     Indication: PRODUCT USED FOR UNKNOWN INDICATION
     Route: 065
  5. COSENTYX [Suspect]
     Active Substance: SECUKINUMAB
     Route: 058
  6. DESOXIMETASONE. [Concomitant]
     Active Substance: DESOXIMETASONE
     Route: 065
  7. COSENTYX [Suspect]
     Active Substance: SECUKINUMAB
     Route: 058
  8. COSENTYX [Suspect]
     Active Substance: SECUKINUMAB
     Route: 058
  9. ACITRETIN. [Concomitant]
     Active Substance: ACITRETIN
     Route: 065

REACTIONS (16)
  - Burning sensation [Fatal]
  - Erythema [Fatal]
  - Peripheral swelling [Fatal]
  - Wound [Fatal]
  - Anaemia [Fatal]
  - Contusion [Fatal]
  - Bloody discharge [Fatal]
  - Scratch [Fatal]
  - Concomitant disease aggravated [Fatal]
  - Psoriasis [Fatal]
  - Insomnia [Fatal]
  - Death [Fatal]
  - Inappropriate schedule of product administration [Fatal]
  - Hepatic cirrhosis [Fatal]
  - Induration [Fatal]
  - Pruritus [Fatal]
